FAERS Safety Report 24738490 (Version 1)
Quarter: 2024Q4

REPORT INFORMATION
  Report Type: Spontaneous
  Country: US (occurrence: US)
  Receive Date: 20241216
  Receipt Date: 20241216
  Transmission Date: 20250115
  Serious: Yes (Hospitalization, Other)
  Sender: FRESENIUS MEDICAL CARE
  Company Number: US-FMCRTG-FMC-2411-001500

PATIENT
  Age: 55 Year
  Sex: Male
  Weight: 81.5 kg

DRUGS (4)
  1. DELFLEX WITH DEXTROSE 1.5% LOW MAGNESIUM LOW CALCIUM [Suspect]
     Active Substance: CALCIUM CHLORIDE\DEXTROSE\MAGNESIUM CHLORIDE\SODIUM CHLORIDE\SODIUM LACTATE
     Indication: End stage renal disease
     Dosage: 7X WEEK, EDW 81.5 (KG) CA 2.5 (MEQ/L) MG 0.5?(MEQ/L), # EXCHANGES 6, FILL?VOL 2200 ML, LAST FILL VOL
     Route: 033
  2. DELFLEX WITH DEXTROSE 2.5% LOW MAGNESIUM LOW CALCIUM [Suspect]
     Active Substance: CALCIUM CHLORIDE\DEXTROSE\MAGNESIUM CHLORIDE\SODIUM CHLORIDE\SODIUM LACTATE
     Indication: End stage renal disease
     Dosage: 7X WEEK, EDW 81.5 (KG) CA 2.5 (MEQ/L) MG 0.5?(MEQ/L), # EXCHANGES 6, FILL?VOL 2200 ML, LAST FILL VOL
     Route: 033
  3. DELFLEX WITH DEXTROSE 4.25% LOW MAGNESIUM LOW CALCIUM [Suspect]
     Active Substance: CALCIUM CHLORIDE\DEXTROSE\MAGNESIUM CHLORIDE\SODIUM CHLORIDE\SODIUM LACTATE
     Indication: End stage renal disease
     Dosage: 7X WEEK, EDW 81.5 (KG) CA 2.5 (MEQ/L) MG 0.5?(MEQ/L), # EXCHANGES 6, FILL?VOL 2200 ML, LAST FILL VOL
     Route: 033
  4. ICODEXTRIN [Suspect]
     Active Substance: ICODEXTRIN
     Indication: End stage renal disease

REACTIONS (3)
  - Peritonitis [Unknown]
  - Peritonitis bacterial [Recovered/Resolved]
  - Bloody peritoneal effluent [Unknown]

NARRATIVE: CASE EVENT DATE: 20240815
